FAERS Safety Report 24656116 (Version 2)
Quarter: 2025Q1

REPORT INFORMATION
  Report Type: Spontaneous
  Country: US (occurrence: US)
  Receive Date: 20241124
  Receipt Date: 20250127
  Transmission Date: 20250409
  Serious: No
  Sender: SANOFI AVENTIS
  Company Number: US-SA-2024SA338201

PATIENT
  Age: 62 Year
  Sex: Female

DRUGS (6)
  1. DUPIXENT [Suspect]
     Active Substance: DUPILUMAB
     Indication: Asthma
     Dosage: 200 MG, QOW
     Route: 058
     Dates: start: 202406
  2. DUPIXENT [Suspect]
     Active Substance: DUPILUMAB
     Indication: Asthma
     Dosage: 300 MG, QOW
     Route: 058
     Dates: start: 202406
  3. ALBUTEROL [Concomitant]
     Active Substance: ALBUTEROL
  4. CLARITIN [Concomitant]
     Active Substance: LORATADINE
  5. ADVAIR HFA [Concomitant]
     Active Substance: FLUTICASONE PROPIONATE\SALMETEROL XINAFOATE
  6. SINGULAIR [Concomitant]
     Active Substance: MONTELUKAST SODIUM

REACTIONS (7)
  - COVID-19 [Unknown]
  - Sinusitis [Unknown]
  - Cough [Unknown]
  - Myalgia [Unknown]
  - Pyrexia [Unknown]
  - Fall [Unknown]
  - Compression fracture [Unknown]

NARRATIVE: CASE EVENT DATE: 20241001
